FAERS Safety Report 4365432-9 (Version None)
Quarter: 2004Q2

REPORT INFORMATION
  Report Type: 
  Country: None (occurrence: None)
  Receive Date: 20040525
  Receipt Date: 20040525
  Transmission Date: 20050107
  Serious: Yes (Hospitalization)
  Sender: FDA-Public Use
  Company Number: None

PATIENT
  Age: 56 Year
  Sex: Female
  Weight: 49.4 kg

DRUGS (15)
  1. WARFARIN SODIUM [Suspect]
     Indication: AORTIC VALVE REPLACEMENT
  2. COMBIVENT [Concomitant]
  3. DULCOLAX [Concomitant]
  4. CLONIDINE HCL [Concomitant]
  5. COLACE [Concomitant]
  6. IMDUR [Concomitant]
  7. LISINOPRIL [Concomitant]
  8. REGLAN [Concomitant]
  9. LOPRESSOR [Concomitant]
  10. PROTONIX [Concomitant]
  11. SENOKOT [Concomitant]
  12. ZOCOR [Concomitant]
  13. TOPAMAX [Concomitant]
  14. DILAUDID [Concomitant]
  15. PLAVIX [Concomitant]

REACTIONS (3)
  - HAEMATEMESIS [None]
  - HAEMORRHAGE [None]
  - INTERNATIONAL NORMALISED RATIO INCREASED [None]
